FAERS Safety Report 8551882-3 (Version None)
Quarter: 2012Q3

REPORT INFORMATION
  Report Type: 
  Country: None (occurrence: None)
  Receive Date: 20120730
  Receipt Date: 20120720
  Transmission Date: 20120928
  Serious: Yes (Other)
  Sender: FDA-Public Use
  Company Number: DE-BAXTER-2012BAX012050

PATIENT
  Sex: Female

DRUGS (3)
  1. KIOVIG [Suspect]
     Dates: start: 20120627, end: 20120628
  2. KIOVIG [Suspect]
     Indication: KAWASAKI'S DISEASE
     Dates: start: 20120626, end: 20120627
  3. KIOVIG [Suspect]
     Indication: KAWASAKI'S DISEASE
     Dates: start: 20120627, end: 20120628

REACTIONS (3)
  - HEPATITIS B CORE ANTIBODY POSITIVE [None]
  - HEPATITIS A ANTIBODY POSITIVE [None]
  - HEPATITIS B SURFACE ANTIBODY POSITIVE [None]
